FAERS Safety Report 7650264-6 (Version None)
Quarter: 2011Q3

REPORT INFORMATION
  Report Type: 
  Country: None (occurrence: None)
  Receive Date: 20110802
  Receipt Date: 20110726
  Transmission Date: 20111222
  Serious: Yes (Hospitalization)
  Sender: FDA-Public Use
  Company Number: FR-TEVA-293144ISR

PATIENT
  Sex: Male
  Weight: 45 kg

DRUGS (7)
  1. CARBOPLATIN [Suspect]
     Indication: LUNG ADENOCARCINOMA
     Dosage: ACCORDING COURSE
     Route: 042
     Dates: start: 20110412, end: 20110614
  2. ALLOPURINOL [Concomitant]
  3. ALIMTA [Suspect]
     Indication: LUNG ADENOCARCINOMA
     Dosage: ACCORDING COURSE
     Route: 042
     Dates: start: 20110412, end: 20110614
  4. PREDNISONE [Concomitant]
  5. NEXIUM [Concomitant]
  6. PAROXETINE HCL [Concomitant]
  7. FOLIC ACID [Concomitant]

REACTIONS (9)
  - ARTERIOSCLEROSIS CORONARY ARTERY [None]
  - SUPRAVENTRICULAR TACHYCARDIA [None]
  - ATRIAL TACHYCARDIA [None]
  - VENTRICULAR HYPOKINESIA [None]
  - ARRHYTHMIA [None]
  - MOVEMENT DISORDER [None]
  - SYNCOPE [None]
  - CHEST PAIN [None]
  - PAIN [None]
